FAERS Safety Report 13738605 (Version 1)
Quarter: 2017Q3

REPORT INFORMATION
  Report Type: Report from Study
  Country: US (occurrence: US)
  Receive Date: 20170710
  Receipt Date: 20170710
  Transmission Date: 20171127
  Serious: No
  Sender: FDA-Public Use
  Company Number: US-SAOL THERAPEUTICS-2017SAO00247

PATIENT
  Sex: Female

DRUGS (7)
  1. FENTANYL. [Suspect]
     Active Substance: FENTANYL
     Dosage: 20 ?G, \DAY
     Route: 037
     Dates: start: 20160721
  2. FENTANYL. [Suspect]
     Active Substance: FENTANYL
     Dosage: 31.9 ?G, \DAY
     Route: 037
     Dates: start: 20160721
  3. FENTANYL. [Suspect]
     Active Substance: FENTANYL
     Dosage: 12 ?G, \DAY
     Route: 037
     Dates: start: 20160513
  4. COMPOUNDED BACLOFEN [Suspect]
     Active Substance: BACLOFEN
     Dosage: 31.9 ?G, \DAY
     Route: 037
     Dates: start: 20160721
  5. COMPOUNDED BACLOFEN [Suspect]
     Active Substance: BACLOFEN
     Dosage: 20 ?G, \DAY
     Route: 037
     Dates: start: 20160513
  6. COMPOUNDED BACLOFEN [Suspect]
     Active Substance: BACLOFEN
     Dosage: 31.82 ?G, \DAY
     Route: 037
     Dates: start: 20160513, end: 20160721
  7. FENTANYL. [Suspect]
     Active Substance: FENTANYL
     Dosage: 19.09 ?G, \DAY
     Route: 037
     Dates: start: 20160513

REACTIONS (1)
  - Limb discomfort [Recovered/Resolved]

NARRATIVE: CASE EVENT DATE: 20160721
